FAERS Safety Report 9676562 (Version 2)
Quarter: 2013Q4

REPORT INFORMATION
  Report Type: Spontaneous
  Country: None (occurrence: SE)
  Receive Date: 20131107
  Receipt Date: 20131114
  Transmission Date: 20140711
  Serious: Yes (Other)
  Sender: FDA-Public Use
  Company Number: SE-ALLERGAN-1317232US

PATIENT
  Age: 29 Year
  Sex: Female

DRUGS (7)
  1. BOTOX [Suspect]
     Indication: MIGRAINE
     Dosage: UNK
     Dates: start: 20120831, end: 20120831
  2. BOTOX [Suspect]
     Indication: HEADACHE
  3. MARCAINE /00330101/ [Suspect]
     Indication: HEADACHE
     Dosage: 15 ML, SINGLE
     Dates: start: 20120321, end: 20120321
  4. MARCAINE /00330101/ [Suspect]
     Indication: MIGRAINE
     Dosage: UNK
     Dates: start: 20121011, end: 20121011
  5. ZOMIG [Concomitant]
     Indication: MIGRAINE
     Dosage: 5 MG, UNK
     Route: 048
     Dates: start: 2011
  6. CATAFLAM [Concomitant]
     Indication: MIGRAINE
  7. METOPROLOL [Concomitant]
     Indication: MIGRAINE
     Dosage: UNK, PRN

REACTIONS (11)
  - Facial pain [Recovering/Resolving]
  - Speech disorder [Recovering/Resolving]
  - Paraesthesia oral [Recovered/Resolved]
  - Paraesthesia oral [Recovered/Resolved]
  - Hypoaesthesia oral [Recovered/Resolved]
  - Sensory loss [Recovered/Resolved]
  - Dysphonia [Unknown]
  - Insomnia [Recovering/Resolving]
  - Toothache [Recovering/Resolving]
  - Dry mouth [Recovering/Resolving]
  - Off label use [Unknown]
